FAERS Safety Report 4732794-X (Version None)
Quarter: 2005Q3

REPORT INFORMATION
  Report Type: 
  Country: None (occurrence: None)
  Receive Date: 20050801
  Receipt Date: 20050801
  Transmission Date: 20060218
  Serious: Yes (Hospitalization)
  Sender: FDA-Public Use
  Company Number: None

PATIENT
  Age: 25 Year
  Sex: Female
  Weight: 55 kg

DRUGS (3)
  1. INFLIXIMAB [Suspect]
     Indication: CROHN'S DISEASE
     Dosage: 300 MG   ONCE  INTRAVENOU
     Route: 042
     Dates: start: 20050713, end: 20050713
  2. MESALAMINE [Concomitant]
  3. PREDNISONE [Concomitant]

REACTIONS (3)
  - CEREBROVASCULAR ACCIDENT [None]
  - INTRACRANIAL VENOUS SINUS THROMBOSIS [None]
  - TRANSAMINASES INCREASED [None]
